FAERS Safety Report 5249461-9 (Version None)
Quarter: 2007Q1

REPORT INFORMATION
  Report Type: 
  Country: None (occurrence: None)
  Receive Date: 20070228
  Receipt Date: 20061108
  Transmission Date: 20070707
  Serious: No
  Sender: FDA-Public Use
  Company Number: US-GLAXOSMITHKLINE-A0626764A

PATIENT

DRUGS (2)
  1. VALTREX [Suspect]
     Dates: start: 20061001
  2. PREVACID [Concomitant]

REACTIONS (2)
  - GASTROOESOPHAGEAL REFLUX DISEASE [None]
  - ILL-DEFINED DISORDER [None]
